FAERS Safety Report 11242035 (Version 2)
Quarter: 2015Q3

REPORT INFORMATION
  Report Type: Report from Study
  Country: BR (occurrence: BR)
  Receive Date: 20150706
  Receipt Date: 20150803
  Transmission Date: 20151125
  Serious: Yes (Other)
  Sender: FDA-Public Use
  Company Number: PHHY2015BR077830

PATIENT
  Sex: Male
  Weight: 76 kg

DRUGS (2)
  1. MIOFLEX [Concomitant]
     Active Substance: SUCCINYLCHOLINE CHLORIDE
     Indication: PAIN
     Dosage: 1 DF (1 TABLET IN CASE PAIN) FROM ONE YEAR AGO
     Route: 048
  2. RITALIN LA [Suspect]
     Active Substance: METHYLPHENIDATE HYDROCHLORIDE
     Indication: PRODUCT USED FOR UNKNOWN INDICATION
     Dosage: 1 DF, QD (1 YEAR AGO)
     Route: 048

REACTIONS (5)
  - Exostosis [Not Recovered/Not Resolved]
  - Vertebral lesion [Not Recovered/Not Resolved]
  - Head discomfort [Not Recovered/Not Resolved]
  - Spinal cord herniation [Not Recovered/Not Resolved]
  - Nausea [Recovered/Resolved]
